FAERS Safety Report 16240604 (Version 2)
Quarter: 2019Q2

REPORT INFORMATION
  Report Type: Report from Study
  Country: US (occurrence: US)
  Receive Date: 20190425
  Receipt Date: 20190523
  Transmission Date: 20190711
  Serious: Yes (Death, Hospitalization, Other)
  Sender: FDA-Public Use
  Company Number: US-TAKEDA-2019TUS004809

PATIENT
  Age: 16 Year
  Sex: Male

DRUGS (3)
  1. VORICONAZOLE. [Concomitant]
     Active Substance: VORICONAZOLE
     Indication: PNEUMONIA FUNGAL
     Dosage: 300 MILLIGRAM, BID
     Route: 042
     Dates: start: 20181227, end: 20190327
  2. PONATINIB [Suspect]
     Active Substance: PONATINIB
     Indication: ACUTE LYMPHOCYTIC LEUKAEMIA REFRACTORY
     Dosage: 30 MILLIGRAM, QD
     Route: 048
     Dates: start: 20190110
  3. PONATINIB [Suspect]
     Active Substance: PONATINIB
     Dosage: 15 MILLIGRAM, QD
     Route: 048
     Dates: end: 20190309

REACTIONS (7)
  - Pyrexia [Recovered/Resolved]
  - Abdominal pain upper [Unknown]
  - Off label use [Unknown]
  - Hypertension [Recovered/Resolved]
  - Acute lymphocytic leukaemia refractory [Fatal]
  - Pain [Unknown]
  - Malaise [Unknown]

NARRATIVE: CASE EVENT DATE: 20190110
